FAERS Safety Report 23745935 (Version 1)
Quarter: 2024Q2

REPORT INFORMATION
  Report Type: Spontaneous
  Country: SI (occurrence: SI)
  Receive Date: 20240416
  Receipt Date: 20240416
  Transmission Date: 20240716
  Serious: Yes (Hospitalization)
  Sender: FDA-Public Use
  Company Number: SI-CHEPLA-2024004586

PATIENT
  Age: 60 Year
  Sex: Female

DRUGS (49)
  1. OLANZAPINE [Suspect]
     Active Substance: OLANZAPINE
     Indication: Psychotic disorder
     Dosage: DAILY DOSE: 1 MILLIGRAM
     Dates: start: 202211
  2. OLANZAPINE [Suspect]
     Active Substance: OLANZAPINE
     Indication: Bradykinesia
     Dosage: DAILY DOSE: 1 MILLIGRAM
     Dates: start: 202211
  3. OLANZAPINE [Suspect]
     Active Substance: OLANZAPINE
     Indication: Psychotic disorder
     Dosage: TITRATION TO 20 MG/DAY?DAILY DOSE: 20 MILLIGRAM
     Dates: start: 202301, end: 202302
  4. OLANZAPINE [Suspect]
     Active Substance: OLANZAPINE
     Indication: Bradykinesia
     Dosage: TITRATION TO 20 MG/DAY?DAILY DOSE: 20 MILLIGRAM
     Dates: start: 202301, end: 202302
  5. OLANZAPINE [Suspect]
     Active Substance: OLANZAPINE
     Indication: Psychotic disorder
  6. OLANZAPINE [Suspect]
     Active Substance: OLANZAPINE
     Indication: Bradykinesia
  7. OLANZAPINE [Suspect]
     Active Substance: OLANZAPINE
     Indication: Psychotic disorder
     Dosage: ALL ANTIPSYCHOTIC MEDICATIONS WERE TEMPORARILY DISCONTINUED. DISCONTINUED IN BETWEEN DEC-2022 TO ...
  8. OLANZAPINE [Suspect]
     Active Substance: OLANZAPINE
     Indication: Bradykinesia
     Dosage: ALL ANTIPSYCHOTIC MEDICATIONS WERE TEMPORARILY DISCONTINUED. DISCONTINUED IN BETWEEN DEC-2022 TO ...
  9. RISPERIDONE [Suspect]
     Active Substance: RISPERIDONE
     Indication: Psychotic disorder
     Dosage: DAILY DOSE: 2 MILLIGRAM
     Dates: start: 201903, end: 202207
  10. RISPERIDONE [Suspect]
     Active Substance: RISPERIDONE
     Indication: Bradykinesia
     Dosage: DAILY DOSE: 2 MILLIGRAM
     Dates: start: 201903, end: 202207
  11. RISPERIDONE [Suspect]
     Active Substance: RISPERIDONE
     Indication: Psychotic disorder
     Dosage: DOSAGE WAS GRADUALLY ESCALATED TO 9 MG/DAY?DAILY DOSE: 9 MILLIGRAM
     Dates: start: 202207, end: 202210
  12. RISPERIDONE [Suspect]
     Active Substance: RISPERIDONE
     Indication: Bradykinesia
     Dosage: DOSAGE WAS GRADUALLY ESCALATED TO 9 MG/DAY?DAILY DOSE: 9 MILLIGRAM
     Dates: start: 202207, end: 202210
  13. RISPERIDONE [Suspect]
     Active Substance: RISPERIDONE
     Indication: Psychotic disorder
     Dosage: DOSE WAS INCREASED TO 2 MG/DAY?DAILY DOSE: 2 MILLIGRAM
     Dates: start: 202210, end: 202210
  14. RISPERIDONE [Suspect]
     Active Substance: RISPERIDONE
     Indication: Bradykinesia
     Dosage: DOSE WAS INCREASED TO 2 MG/DAY?DAILY DOSE: 2 MILLIGRAM
     Dates: start: 202210, end: 202210
  15. RISPERIDONE [Suspect]
     Active Substance: RISPERIDONE
     Indication: Psychotic disorder
     Dosage: RISPERIDONE WAS GRADUALLY DISCONTINUED. ?DAILY DOSE: 6 MILLIGRAM
     Dates: end: 202211
  16. RISPERIDONE [Suspect]
     Active Substance: RISPERIDONE
     Indication: Bradykinesia
     Dosage: RISPERIDONE WAS GRADUALLY DISCONTINUED. ?DAILY DOSE: 6 MILLIGRAM
     Dates: end: 202211
  17. RISPERIDONE [Suspect]
     Active Substance: RISPERIDONE
     Indication: Psychotic disorder
     Dosage: LOW-DOSE RISPERIDONE TREATMENT WAS INITIATED, INITIALLY AT 1 MG/DAY?DAILY DOSE: 1 MILLIGRAM
  18. RISPERIDONE [Suspect]
     Active Substance: RISPERIDONE
     Indication: Bradykinesia
     Dosage: LOW-DOSE RISPERIDONE TREATMENT WAS INITIATED, INITIALLY AT 1 MG/DAY?DAILY DOSE: 1 MILLIGRAM
  19. RISPERIDONE [Suspect]
     Active Substance: RISPERIDONE
     Indication: Psychotic disorder
     Dosage: RISPERIDONE AT A DAILY DOSE OF 9 MG, DIVIDED INTO TWO DOSES?DAILY DOSE: 9 MILLIGRAM
  20. RISPERIDONE [Suspect]
     Active Substance: RISPERIDONE
     Indication: Bradykinesia
     Dosage: RISPERIDONE AT A DAILY DOSE OF 9 MG, DIVIDED INTO TWO DOSES?DAILY DOSE: 9 MILLIGRAM
  21. RISPERIDONE [Suspect]
     Active Substance: RISPERIDONE
     Indication: Psychotic disorder
     Dosage: DOSE OF RISPERIDONE WAS REDUCED TO 6 MG/DAY?DAILY DOSE: 6 MILLIGRAM
  22. RISPERIDONE [Suspect]
     Active Substance: RISPERIDONE
     Indication: Bradykinesia
     Dosage: DOSE OF RISPERIDONE WAS REDUCED TO 6 MG/DAY?DAILY DOSE: 6 MILLIGRAM
  23. RISPERIDONE [Suspect]
     Active Substance: RISPERIDONE
     Indication: Psychotic disorder
     Dosage: DISCONTINUED IN BETWEEN DEC-2022 TO JAN-2023?DAILY DOSE: 6 MILLIGRAM
  24. RISPERIDONE [Suspect]
     Active Substance: RISPERIDONE
     Indication: Bradykinesia
     Dosage: DISCONTINUED IN BETWEEN DEC-2022 TO JAN-2023?DAILY DOSE: 6 MILLIGRAM
  25. FLUPHENAZINE [Suspect]
     Active Substance: FLUPHENAZINE
     Indication: Psychotic disorder
     Dosage: FLUPHENAZINE AT A DOSE OF 10 MG PER DAY, ALSO DIVIDED INTO TWO DOSES.?DAILY DOSE: 10 MILLIGRAM
     Dates: start: 202207, end: 202210
  26. FLUPHENAZINE [Suspect]
     Active Substance: FLUPHENAZINE
     Indication: Bradykinesia
     Dosage: FLUPHENAZINE AT A DOSE OF 10 MG PER DAY, ALSO DIVIDED INTO TWO DOSES.?DAILY DOSE: 10 MILLIGRAM
     Dates: start: 202207, end: 202210
  27. FLUPHENAZINE [Suspect]
     Active Substance: FLUPHENAZINE
     Indication: Psychotic disorder
     Dates: end: 202210
  28. FLUPHENAZINE [Suspect]
     Active Substance: FLUPHENAZINE
     Indication: Bradykinesia
     Dates: end: 202210
  29. FLUPHENAZINE [Suspect]
     Active Substance: FLUPHENAZINE
     Indication: Psychotic disorder
     Dosage: DOSE OF FLUPHENAZINE WAS REDUCED ON ADMISSION
  30. FLUPHENAZINE [Suspect]
     Active Substance: FLUPHENAZINE
     Indication: Bradykinesia
     Dosage: DOSE OF FLUPHENAZINE WAS REDUCED ON ADMISSION
  31. FLUPHENAZINE [Suspect]
     Active Substance: FLUPHENAZINE
     Indication: Psychotic disorder
     Dosage: DOSE OF FLUPHENAZINE WAS REDUCED ON ADMISSION AND DISCONTINUED THE NEXT DAY
  32. FLUPHENAZINE [Suspect]
     Active Substance: FLUPHENAZINE
     Indication: Bradykinesia
     Dosage: DOSE OF FLUPHENAZINE WAS REDUCED ON ADMISSION AND DISCONTINUED THE NEXT DAY
  33. FLUPHENAZINE [Suspect]
     Active Substance: FLUPHENAZINE
     Indication: Psychotic disorder
     Dosage: DISCONTINUED IN BETWEEN DEC-2022 TO JAN-2023
  34. FLUPHENAZINE [Suspect]
     Active Substance: FLUPHENAZINE
     Indication: Bradykinesia
     Dosage: DISCONTINUED IN BETWEEN DEC-2022 TO JAN-2023
  35. BIPERIDEN [Suspect]
     Active Substance: BIPERIDEN
     Indication: Psychotic disorder
     Dosage: DOSE OF 4 MG/DAY DIVIDED INTO TWO DOSES?DAILY DOSE: 4 MILLIGRAM
     Dates: start: 202210, end: 202210
  36. BIPERIDEN [Suspect]
     Active Substance: BIPERIDEN
     Indication: Bradykinesia
     Dosage: DOSE OF 4 MG/DAY DIVIDED INTO TWO DOSES?DAILY DOSE: 4 MILLIGRAM
     Dates: start: 202210, end: 202210
  37. BIPERIDEN [Suspect]
     Active Substance: BIPERIDEN
     Indication: Psychotic disorder
     Dosage: CONCOMITANTLY RECEIVING BIPERIDEN AT A DOSAGE OF 6 MG/DAY?DAILY DOSE: 6 MILLIGRAM
     Dates: start: 202211, end: 202212
  38. BIPERIDEN [Suspect]
     Active Substance: BIPERIDEN
     Indication: Bradykinesia
     Dosage: CONCOMITANTLY RECEIVING BIPERIDEN AT A DOSAGE OF 6 MG/DAY?DAILY DOSE: 6 MILLIGRAM
     Dates: start: 202211, end: 202212
  39. BIPERIDEN [Suspect]
     Active Substance: BIPERIDEN
     Indication: Psychotic disorder
     Dosage: ALL ANTIPSYCHOTIC MEDICATIONS WERE TEMPORARILY DISCONTINUED. DISCONTINUED IN BETWEEN DEC-2022 TO ...
  40. BIPERIDEN [Suspect]
     Active Substance: BIPERIDEN
     Indication: Bradykinesia
     Dosage: ALL ANTIPSYCHOTIC MEDICATIONS WERE TEMPORARILY DISCONTINUED. DISCONTINUED IN BETWEEN DEC-2022 TO ...
  41. ARIPIPRAZOLE [Suspect]
     Active Substance: ARIPIPRAZOLE
     Indication: Psychotic disorder
     Dosage: DAILY DOSE: 10 MILLIGRAM
     Dates: end: 202211
  42. ARIPIPRAZOLE [Suspect]
     Active Substance: ARIPIPRAZOLE
     Indication: Psychotic disorder
     Dosage: DOSAGE OF 5 MG/DAY?DAILY DOSE: 5 MILLIGRAM
  43. ARIPIPRAZOLE [Suspect]
     Active Substance: ARIPIPRAZOLE
     Indication: Psychotic disorder
     Dosage: LATER INCREASED TO 10 MG/DAY?DAILY DOSE: 10 MILLIGRAM
  44. ARIPIPRAZOLE [Suspect]
     Active Substance: ARIPIPRAZOLE
     Indication: Psychotic disorder
     Dosage: ARIPIPRAZOLE WAS REPLACED. DISCONTINUED IN BETWEEN DEC-2022 TO JAN-2023?DAILY DOSE: 10 MILLIGRAM
  45. LORAZEPAM [Suspect]
     Active Substance: LORAZEPAM
     Indication: Psychotic disorder
     Dosage: DOSE OF 1 MG THREE TIMES DAILY?DAILY DOSE: 3 MILLIGRAM
  46. LORAZEPAM [Suspect]
     Active Substance: LORAZEPAM
     Indication: Psychotic disorder
     Dosage: LATER 2 MG TWICE DAILY?DAILY DOSE: 4 MILLIGRAM
  47. LORAZEPAM [Suspect]
     Active Substance: LORAZEPAM
     Indication: Psychotic disorder
     Dosage: DISCONTINUED IN BETWEEN DEC-2022 TO JAN-2023?DAILY DOSE: 4 MILLIGRAM
  48. BREXPIPRAZOLE [Suspect]
     Active Substance: BREXPIPRAZOLE
     Indication: Psychotic disorder
     Dosage: DAILY DOSE: 1 MILLIGRAM
     Dates: start: 202211
  49. BREXPIPRAZOLE [Suspect]
     Active Substance: BREXPIPRAZOLE
     Indication: Psychotic disorder
     Dosage: DISCONTINUED IN BETWEEN DEC-2022 TO JAN-2023?DAILY DOSE: 1 MILLIGRAM

REACTIONS (6)
  - Neuroleptic malignant syndrome [Unknown]
  - Pneumonia bacterial [Unknown]
  - Influenza [Unknown]
  - General physical health deterioration [Unknown]
  - Aspiration [Unknown]
  - Extrapyramidal disorder [Unknown]
